FAERS Safety Report 12334435 (Version 1)
Quarter: 2016Q2

REPORT INFORMATION
  Report Type: Spontaneous
  Country: US (occurrence: US)
  Receive Date: 20160504
  Receipt Date: 20160504
  Transmission Date: 20160815
  Serious: Yes (Hospitalization)
  Sender: FDA-Public Use
  Company Number: US-JNJFOC-20160423460

PATIENT
  Age: 69 Year
  Sex: Male
  Weight: 102.3 kg

DRUGS (1)
  1. DARZALEX [Suspect]
     Active Substance: DARATUMUMAB
     Indication: PLASMA CELL MYELOMA
     Route: 042
     Dates: start: 20160128

REACTIONS (5)
  - Oxygen saturation decreased [Unknown]
  - Inappropriate schedule of drug administration [Recovered/Resolved]
  - Pulmonary artery dilatation [Unknown]
  - Tachycardia [Unknown]
  - Dyspnoea exertional [Unknown]

NARRATIVE: CASE EVENT DATE: 20160423
